FAERS Safety Report 22607357 (Version 1)
Quarter: 2023Q2

REPORT INFORMATION
  Report Type: Report from Study
  Country: US (occurrence: US)
  Receive Date: 20230616
  Receipt Date: 20230616
  Transmission Date: 20230721
  Serious: Yes (Hospitalization)
  Sender: FDA-Public Use
  Company Number: US-JNJFOC-20230619477

PATIENT
  Age: 10 Month
  Sex: Male
  Weight: 9.08 kg

DRUGS (2)
  1. BOSENTAN [Suspect]
     Active Substance: BOSENTAN
     Indication: Pulmonary arterial hypertension
     Dosage: 1 HALF TABLET (16 MG) IN 5-10 ML WATER AND VIA G-TUBE EVERY 12 HOURS, ORALLY
     Route: 048
     Dates: start: 20230330
  2. SILDENAFIL CITRATE [Concomitant]
     Active Substance: SILDENAFIL CITRATE

REACTIONS (4)
  - Pulmonary oedema [Unknown]
  - Pyrexia [Unknown]
  - Vomiting [Unknown]
  - Off label use [Unknown]

NARRATIVE: CASE EVENT DATE: 20230330
